FAERS Safety Report 6800755-2 (Version None)
Quarter: 2010Q2

REPORT INFORMATION
  Report Type: 
  Country: None (occurrence: None)
  Receive Date: 20100629
  Receipt Date: 20100623
  Transmission Date: 20101027
  Serious: Yes (Other)
  Sender: FDA-Public Use
  Company Number: TR-JNJFOC-20090606386

PATIENT
  Age: 14 Year
  Sex: Female

DRUGS (6)
  1. RISPERIDONE [Suspect]
     Indication: BORDERLINE PERSONALITY DISORDER
     Route: 065
  2. RISPERIDONE [Suspect]
     Route: 065
  3. RISPERIDONE [Suspect]
     Indication: CONDUCT DISORDER
     Route: 065
  4. RISPERIDONE [Suspect]
     Route: 065
  5. VALPROIC ACID [Suspect]
     Indication: BORDERLINE PERSONALITY DISORDER
     Dosage: 20 MG PER KILOGRAM OF BODY WEIGHT DAILY
     Route: 065
  6. VALPROIC ACID [Suspect]
     Indication: CONDUCT DISORDER
     Dosage: 20 MG PER KILOGRAM OF BODY WEIGHT DAILY
     Route: 065

REACTIONS (1)
  - BIPOLAR DISORDER [None]
